FAERS Safety Report 18143188 (Version 1)
Quarter: 2020Q3

REPORT INFORMATION
  Report Type: Report from Study
  Country: CA (occurrence: CA)
  Receive Date: 20200812
  Receipt Date: 20200812
  Transmission Date: 20201103
  Serious: Yes (Other)
  Sender: FDA-Public Use
  Company Number: CA-HLS-202000964

PATIENT
  Sex: Male

DRUGS (1)
  1. CLOZARIL [Suspect]
     Active Substance: CLOZAPINE
     Route: 048
     Dates: start: 20180130, end: 20200616

REACTIONS (3)
  - Orthostatic hypertension [Unknown]
  - Urinary hesitation [Unknown]
  - Generalised tonic-clonic seizure [Unknown]
